FAERS Safety Report 4712761-2 (Version None)
Quarter: 2005Q3

REPORT INFORMATION
  Report Type: 
  Country: None (occurrence: None)
  Receive Date: 20050701
  Receipt Date: 20050316
  Transmission Date: 20060218
  Serious: Yes (Other)
  Sender: FDA-Public Use
  Company Number: 2005006451

PATIENT
  Age: 32 Year
  Sex: Female
  Weight: 72.5755 kg

DRUGS (3)
  1. ZOLOFT [Suspect]
     Indication: DEPRESSION
     Dosage: 250 MG, ORAL
     Route: 048
     Dates: start: 20041206
  2. OLANZAPINE [Concomitant]
  3. LORAZEPAM [Concomitant]

REACTIONS (4)
  - CONVULSION [None]
  - DYSKINESIA [None]
  - HYPERHIDROSIS [None]
  - UNEVALUABLE EVENT [None]
